FAERS Safety Report 23205940 (Version 8)
Quarter: 2025Q4

REPORT INFORMATION
  Report Type: Spontaneous
  Country: JP (occurrence: JP)
  Receive Date: 20231120
  Receipt Date: 20251226
  Transmission Date: 20260118
  Serious: Yes (Death, Hospitalization, Other)
  Sender: ASTELLAS
  Company Number: JP-ASTELLAS-2023JP010051

PATIENT
  Age: 86 Year
  Sex: Male
  Weight: 72 kg

DRUGS (20)
  1. PADCEV [Suspect]
     Active Substance: ENFORTUMAB VEDOTIN-EJFV
     Indication: Ureteric cancer
     Route: 042
     Dates: start: 20230808, end: 20230822
  2. PADCEV [Suspect]
     Active Substance: ENFORTUMAB VEDOTIN-EJFV
     Indication: Malignant neoplasm of renal pelvis
  3. METOCLOPRAMIDE [Concomitant]
     Active Substance: METOCLOPRAMIDE
     Indication: Product used for unknown indication
     Route: 065
  4. CEFEPIME [Concomitant]
     Active Substance: CEFEPIME HYDROCHLORIDE
     Indication: Pancytopenia
     Route: 065
     Dates: start: 20230826, end: 2023
  5. CEFEPIME [Concomitant]
     Active Substance: CEFEPIME HYDROCHLORIDE
     Indication: Toxic epidermal necrolysis
  6. FILGRASTIM [Concomitant]
     Active Substance: FILGRASTIM
     Indication: Pancytopenia
     Route: 065
     Dates: start: 20230826, end: 2023
  7. FILGRASTIM [Concomitant]
     Active Substance: FILGRASTIM
     Indication: Toxic epidermal necrolysis
  8. SOLU-MEDROL [Concomitant]
     Active Substance: METHYLPREDNISOLONE SODIUM SUCCINATE
     Indication: Pancytopenia
     Dosage: 3 DAYS
     Route: 042
     Dates: start: 20230828, end: 20230830
  9. SOLU-MEDROL [Concomitant]
     Active Substance: METHYLPREDNISOLONE SODIUM SUCCINATE
     Indication: Toxic epidermal necrolysis
  10. PREDONINE [Concomitant]
     Active Substance: PREDNISOLONE
     Indication: Pancytopenia
     Dosage: 6 DAYS
     Route: 042
     Dates: start: 20230831, end: 20230905
  11. PREDONINE [Concomitant]
     Active Substance: PREDNISOLONE
     Indication: Toxic epidermal necrolysis
  12. KENKETU GLOVENIN-I [Concomitant]
     Active Substance: HUMAN IMMUNOGLOBULIN G
     Indication: Pancytopenia
     Dosage: 27500 UNITS
     Route: 042
     Dates: start: 20230902, end: 20230905
  13. KENKETU GLOVENIN-I [Concomitant]
     Active Substance: HUMAN IMMUNOGLOBULIN G
     Indication: Toxic epidermal necrolysis
  14. KENKETU GLOVENIN-I [Concomitant]
     Active Substance: HUMAN IMMUNOGLOBULIN G
     Indication: Multiple organ dysfunction syndrome
  15. THROMBOMODULIN ALFA [Concomitant]
     Active Substance: THROMBOMODULIN ALFA
     Indication: Pancytopenia
     Route: 065
     Dates: start: 20230904
  16. THROMBOMODULIN ALFA [Concomitant]
     Active Substance: THROMBOMODULIN ALFA
     Indication: Toxic epidermal necrolysis
  17. THROMBOMODULIN ALFA [Concomitant]
     Active Substance: THROMBOMODULIN ALFA
     Indication: Multiple organ dysfunction syndrome
  18. TEICOPLANIN [Concomitant]
     Active Substance: TEICOPLANIN
     Indication: Pancytopenia
     Route: 065
     Dates: start: 20230904
  19. TEICOPLANIN [Concomitant]
     Active Substance: TEICOPLANIN
     Indication: Toxic epidermal necrolysis
     Route: 065
  20. TEICOPLANIN [Concomitant]
     Active Substance: TEICOPLANIN
     Indication: Multiple organ dysfunction syndrome

REACTIONS (4)
  - Pancytopenia [Fatal]
  - Multiple organ dysfunction syndrome [Fatal]
  - Septic shock [Fatal]
  - Toxic epidermal necrolysis [Fatal]

NARRATIVE: CASE EVENT DATE: 20230826
